FAERS Safety Report 16599267 (Version 1)
Quarter: 2019Q3

REPORT INFORMATION
  Report Type: Spontaneous
  Country: IN (occurrence: IN)
  Receive Date: 20190719
  Receipt Date: 20190719
  Transmission Date: 20191004
  Serious: Yes (Other)
  Sender: FDA-Public Use
  Company Number: IN-AKORN PHARMACEUTICALS-2019AKN01502

PATIENT

DRUGS (2)
  1. UNSPECIFIED AKT TREATMENT [Concomitant]
     Dosage: MODIFIED PER RENAL FUNCTION
     Route: 065
  2. RIFAMPIN. [Suspect]
     Active Substance: RIFAMPIN
     Dosage: MODIFIED PER RENAL FUNCTION
     Route: 065

REACTIONS (1)
  - Accelerated hypertension [Unknown]
